FAERS Safety Report 13075474 (Version 1)
Quarter: 2016Q4

REPORT INFORMATION
  Report Type: Report from Study
  Country: DE (occurrence: DE)
  Receive Date: 20161230
  Receipt Date: 20161230
  Transmission Date: 20170207
  Serious: Yes (Life-Threatening)
  Sender: FDA-Public Use
  Company Number: DE-TEVA-724242GER

PATIENT
  Age: 66 Year
  Sex: Male
  Weight: 75.5 kg

DRUGS (17)
  1. CYCLOPHOSPHAMID [Suspect]
     Active Substance: CYCLOPHOSPHAMIDE
     Indication: LYMPHOMA
     Dosage: LAST DOSE PRIOR EVENT: 24-NOV-2011
     Route: 042
     Dates: start: 20111124
  2. GRANISETRON [Concomitant]
     Active Substance: GRANISETRON
     Indication: PROPHYLAXIS OF NAUSEA AND VOMITING
     Dates: start: 20111124, end: 20120308
  3. PANTOPRAZOL [Concomitant]
     Active Substance: PANTOPRAZOLE SODIUM
     Indication: PROPHYLAXIS
     Dates: start: 20111215
  4. VINCRISTINE [Suspect]
     Active Substance: VINCRISTINE
     Dosage: LAST DOSE PRIOR EVENT: 26-JAN-2012
     Route: 042
     Dates: start: 20111124
  5. PREDNISONE. [Suspect]
     Active Substance: PREDNISONE
     Dosage: LAST DOSE PRIOR EVENT: 31-JAN-2012
     Route: 065
  6. DOXORUBICIN [Suspect]
     Active Substance: DOXORUBICIN
     Indication: LYMPHOMA
     Dosage: LAST DOSE PRIOR EVENT: 24-NOV-2011
     Route: 042
     Dates: start: 20111124
  7. PREDNISONE. [Suspect]
     Active Substance: PREDNISONE
     Indication: LYMPHOMA
     Dosage: LAST DOSE PRIOR EVENT: 28-NOV-2011
     Route: 065
     Dates: start: 20111124
  8. RITUXIMAB [Suspect]
     Active Substance: RITUXIMAB
     Indication: LYMPHOMA
     Dosage: LAST DOSE PRIOR EVENT: 24-NOV-2011
     Route: 042
     Dates: start: 20111124
  9. VINCRISTINE [Suspect]
     Active Substance: VINCRISTINE
     Indication: LYMPHOMA
     Dosage: LAST DOSE PRIOR EVENT: 24-NOV-2011
     Route: 042
     Dates: start: 20111124
  10. CYCLOPHOSPHAMID [Suspect]
     Active Substance: CYCLOPHOSPHAMIDE
     Dosage: LAST DOSE PRIOR EVENT: 26-JAN-2012
     Route: 042
     Dates: start: 20120126
  11. PARACETAMOL [Concomitant]
     Active Substance: ACETAMINOPHEN
     Indication: PROPHYLAXIS
  12. EMEND [Concomitant]
     Active Substance: APREPITANT
     Indication: PROPHYLAXIS OF NAUSEA AND VOMITING
     Dates: start: 20111124, end: 20120310
  13. METOCLOPRAMIDE. [Concomitant]
     Active Substance: METOCLOPRAMIDE
     Indication: VOMITING
     Dates: start: 20111215
  14. DOXORUBICIN [Suspect]
     Active Substance: DOXORUBICIN
     Dosage: LAST DOSE PRIOR EVENT: 26-JAN-2012
     Route: 042
     Dates: start: 20161124
  15. UROMITEXAN [Concomitant]
     Active Substance: MESNA
  16. RITUXIMAB [Suspect]
     Active Substance: RITUXIMAB
     Dosage: LAST DOSE PRIOR EVENT: 26-JAN-2012
     Route: 042
     Dates: start: 20120126
  17. RANITIDIN [Concomitant]
     Active Substance: RANITIDINE HYDROCHLORIDE
     Indication: PROPHYLAXIS

REACTIONS (2)
  - Infection [Recovered/Resolved]
  - Neutropenia [Recovered/Resolved]

NARRATIVE: CASE EVENT DATE: 20111205
